FAERS Safety Report 9148269 (Version 1)
Quarter: 2013Q1

REPORT INFORMATION
  Report Type: Spontaneous
  Country: US (occurrence: None)
  Receive Date: 20130228
  Receipt Date: 20130228
  Transmission Date: 20140127
  Serious: No
  Sender: FDA-Public Use
  Company Number: None

PATIENT
  Age: 37 Year
  Sex: Female

DRUGS (2)
  1. ESCITALOPRAM 10 MG [Suspect]
     Indication: DEPRESSION
     Dosage: 10MG 1/D / PILL FOR 2 YEARS
  2. PROZAC [Suspect]
     Indication: DEPRESSION
     Dosage: 20 MG 1/ D/PILL
     Dates: start: 2010

REACTIONS (2)
  - Product substitution issue [None]
  - Unevaluable event [None]
